FAERS Safety Report 10889365 (Version 2)
Quarter: 2015Q2

REPORT INFORMATION
  Report Type: Spontaneous
  Country: US (occurrence: US)
  Receive Date: 20150305
  Receipt Date: 20150513
  Transmission Date: 20150821
  Serious: No
  Sender: FDA-Public Use
  Company Number: US-009507513-1502USA008619

PATIENT
  Age: 24 Year
  Sex: Female
  Weight: 90.71 kg

DRUGS (1)
  1. NEXPLANON [Suspect]
     Active Substance: ETONOGESTREL
     Indication: CONTRACEPTION
     Dosage: 1 ROD EVERY THREE YEARS
     Route: 059
     Dates: start: 20130328, end: 20150210

REACTIONS (6)
  - Weight increased [Unknown]
  - Device difficult to use [Recovered/Resolved]
  - Menorrhagia [Unknown]
  - Device breakage [Recovered/Resolved]
  - Product quality issue [Unknown]
  - Medical device complication [Recovered/Resolved]

NARRATIVE: CASE EVENT DATE: 20130328
